FAERS Safety Report 10799925 (Version 1)
Quarter: 2015Q1

REPORT INFORMATION
  Report Type: Report from Study
  Country: US (occurrence: US)
  Receive Date: 20150216
  Receipt Date: 20150216
  Transmission Date: 20150721
  Serious: No
  Sender: FDA-Public Use
  Company Number: US-ABBVIE-14K-163-1244562-00

PATIENT
  Sex: Female

DRUGS (6)
  1. TRAMADOL [Concomitant]
     Active Substance: TRAMADOL
     Indication: PRODUCT USED FOR UNKNOWN INDICATION
     Dosage: FOUR TIMES A DAY
  2. ENBREL [Suspect]
     Active Substance: ETANERCEPT
     Indication: SWELLING
  3. HUMIRA [Suspect]
     Active Substance: ADALIMUMAB
     Indication: PSORIATIC ARTHROPATHY
     Dates: start: 2004, end: 2006
  4. ENBREL [Suspect]
     Active Substance: ETANERCEPT
     Indication: PAIN
  5. UNKNOWN ANTI-INFLAMMATORY [Concomitant]
     Indication: ANTIINFLAMMATORY THERAPY
  6. HUMIRA [Suspect]
     Active Substance: ADALIMUMAB
     Dates: start: 2009

REACTIONS (2)
  - Drug effect decreased [Recovered/Resolved]
  - Psoriatic arthropathy [Recovered/Resolved]

NARRATIVE: CASE EVENT DATE: 2006
